FAERS Safety Report 24364166 (Version 3)
Quarter: 2024Q4

REPORT INFORMATION
  Report Type: Spontaneous
  Country: US (occurrence: US)
  Receive Date: 20240925
  Receipt Date: 20241030
  Transmission Date: 20250114
  Serious: No
  Sender: SANDOZ
  Company Number: US-SANDOZ-SDZ2024US082625

PATIENT
  Sex: Female

DRUGS (1)
  1. LATANOPROST [Suspect]
     Active Substance: LATANOPROST
     Indication: Glaucoma
     Dosage: 1 DROP, QN
     Route: 047

REACTIONS (4)
  - Stress [Unknown]
  - Extra dose administered [Unknown]
  - Product communication issue [Unknown]
  - Product packaging quantity issue [Unknown]
